FAERS Safety Report 21460936 (Version 1)
Quarter: 2022Q4

REPORT INFORMATION
  Report Type: Spontaneous
  Country: US (occurrence: US)
  Receive Date: 20221015
  Receipt Date: 20221015
  Transmission Date: 20230113
  Serious: Yes (Other)
  Sender: FDA-Public Use
  Company Number: US-STRIDES ARCOLAB LIMITED-2022SP013413

PATIENT
  Age: 49 Year
  Sex: Male

DRUGS (4)
  1. ETOPOSIDE [Suspect]
     Active Substance: ETOPOSIDE
     Indication: Extragonadal primary seminoma (pure) stage II
     Dosage: UNK, 3 CYCLES OF CHEMOTHERAPY PLANNED
     Route: 065
  2. CISPLATIN [Suspect]
     Active Substance: CISPLATIN
     Indication: Extragonadal primary seminoma (pure) stage II
     Dosage: UNK, 2 CYCLES OF CHEMOTHERAPY
     Route: 065
  3. CISPLATIN [Suspect]
     Active Substance: CISPLATIN
     Dosage: UNK, REMAINING CYCLES OF CHEMOTHERAPY
     Route: 065
  4. BLEOMYCIN [Suspect]
     Active Substance: BLEOMYCIN SULFATE
     Indication: Extragonadal primary seminoma (pure) stage II
     Dosage: UNK, 3 CYCLES OF CHEMOTHERAPY PLANNED
     Route: 065

REACTIONS (2)
  - Embolism arterial [Recovered/Resolved]
  - Off label use [Unknown]
